FAERS Safety Report 12105665 (Version 1)
Quarter: 2016Q1

REPORT INFORMATION
  Report Type: Spontaneous
  Country: US (occurrence: US)
  Receive Date: 20160223
  Receipt Date: 20160223
  Transmission Date: 20160526
  Serious: No
  Sender: FDA-Public Use
  Company Number: US-MEDA-2016020031

PATIENT
  Age: 70 Year
  Sex: Male
  Weight: 82 kg

DRUGS (2)
  1. LIPITOR [Concomitant]
     Active Substance: ATORVASTATIN CALCIUM
     Indication: BLOOD CHOLESTEROL INCREASED
  2. MUSE [Suspect]
     Active Substance: ALPROSTADIL
     Indication: ERECTILE DYSFUNCTION
     Route: 066

REACTIONS (2)
  - Product quality issue [Unknown]
  - Drug ineffective [Unknown]

NARRATIVE: CASE EVENT DATE: 20160204
